FAERS Safety Report 17287872 (Version 1)
Quarter: 2020Q1

REPORT INFORMATION
  Report Type: Spontaneous
  Country: US (occurrence: US)
  Receive Date: 20191231
  Receipt Date: 20191231
  Transmission Date: 20200409
  Serious: No
  Sender: FDA-Public Use
  Company Number: None

PATIENT
  Age: 56 Year
  Sex: Female

DRUGS (1)
  1. IBRANCE [Suspect]
     Active Substance: PALBOCICLIB
     Indication: BREAST CANCER
     Route: 048
     Dates: start: 201807

REACTIONS (5)
  - Pain in extremity [None]
  - Pain [None]
  - Paraesthesia [None]
  - Neuropathy peripheral [None]
  - Peripheral swelling [None]

NARRATIVE: CASE EVENT DATE: 20191231
